FAERS Safety Report 5075312-1 (Version None)
Quarter: 2006Q3

REPORT INFORMATION
  Report Type: 
  Country: None (occurrence: None)
  Receive Date: 20060804
  Receipt Date: 20060724
  Transmission Date: 20061208
  Serious: Yes (Hospitalization, Other)
  Sender: FDA-Public Use
  Company Number: 2006089992

PATIENT
  Age: 71 Year
  Sex: Male
  Weight: 77 kg

DRUGS (16)
  1. ZYVOX [Suspect]
     Indication: WOUND INFECTION STAPHYLOCOCCAL
     Dosage: 1200 MG  (BID), ORAL
     Route: 048
     Dates: start: 20060619, end: 20060629
  2. WARFARIN (WARFARIN POTASSIUM) (WARFARIN) [Suspect]
     Indication: CEREBRAL INFARCTION
     Dosage: 6 MG (1 IN 1 D), ORAL
     Route: 048
     Dates: start: 20060428
  3. LASIX [Concomitant]
  4. LANIRAPID (METILDIGOXIN) [Concomitant]
  5. ALDACTONE [Concomitant]
  6. FERROMIA (FERROUS CITRATE) [Concomitant]
  7. VERAPAMIL HYDROCHLORIDE [Concomitant]
  8. PHENYTOIN [Concomitant]
  9. WARFARIN SODIUM [Concomitant]
  10. LEVOFLOXACIN [Concomitant]
  11. LENDORMIN D (BROTIZOLAM) (BROTIZOLAM) [Concomitant]
  12. ROHYPNOL (FLUNITRAZEPAM) (FLUNITRAZEPAM) [Concomitant]
  13. PRODIF (FOSFLUCLONAZOLE) (FOSFLUCLONAZOLE) [Concomitant]
  14. VANCOMYCIN (VANCOMYCIN HYDROCHLORIDE) (VANCOMYCIN) [Concomitant]
  15. TIENAM (IMIPENEM CILASTATIN) (CILASTATIN, IMIPENEM) [Concomitant]
  16. TWINPAL (MIXED AMINO ACID CARBOHYDRATE ELECTROLYTE COMBINED DRUG (ALL [Concomitant]

REACTIONS (5)
  - ATRIAL FIBRILLATION [None]
  - CEREBRAL INFARCTION [None]
  - INTERNATIONAL NORMALISED RATIO INCREASED [None]
  - PLATELET COUNT DECREASED [None]
  - PROTHROMBIN LEVEL DECREASED [None]
